FAERS Safety Report 8090639-7 (Version None)
Quarter: 2012Q1

REPORT INFORMATION
  Report Type: 
  Country: None (occurrence: None)
  Receive Date: 20120129
  Receipt Date: 20111212
  Transmission Date: 20120608
  Serious: No
  Sender: FDA-Public Use
  Company Number: US-ABBOTT-11P-163-0881558-00

PATIENT
  Sex: Female
  Weight: 59.02 kg

DRUGS (12)
  1. HUMIRA [Suspect]
     Dosage: 160 MG X ONE DOSE
     Dates: start: 20111103
  2. METHADONE HCL [Concomitant]
     Indication: BACK PAIN
     Dosage: TID
  3. RESTASIS [Concomitant]
     Indication: DRY EYE
     Dosage: 2 GTT BOTH EYES DAILY
     Route: 047
  4. NORVASC [Concomitant]
     Indication: HYPERTENSION
     Dosage: DAILY
  5. TOPROL-XL [Concomitant]
     Indication: HYPERTENSION
     Dosage: DAILY
  6. PRINIVIL [Concomitant]
     Indication: HYPERTENSION
     Dosage: DAILY
  7. ATIVAN [Concomitant]
     Indication: ANXIETY
     Dosage: PRN
  8. PENTASA [Concomitant]
     Indication: CROHN'S DISEASE
     Dosage: 4 TABS BID
     Dates: start: 20110101
  9. HUMIRA [Suspect]
     Indication: CROHN'S DISEASE
     Dosage: 80MG X TWO DOSES
     Dates: start: 20111201
  10. MAXZIDE [Concomitant]
     Indication: DIURETIC THERAPY
     Dosage: 37.5/25 PRN
  11. LISINOPRIL [Concomitant]
     Indication: HYPERTENSION
  12. PRAVACHOL [Concomitant]
     Indication: BLOOD CHOLESTEROL INCREASED
     Dosage: DAILY

REACTIONS (2)
  - INCORRECT DOSE ADMINISTERED [None]
  - ALOPECIA [None]
